FAERS Safety Report 23378392 (Version 1)
Quarter: 2024Q1

REPORT INFORMATION
  Report Type: Report from Study
  Country: US (occurrence: US)
  Receive Date: 20240108
  Receipt Date: 20240108
  Transmission Date: 20240410
  Serious: Yes (Other)
  Sender: FDA-Public Use
  Company Number: US-SHIRE-US202005509

PATIENT
  Sex: Female

DRUGS (2)
  1. HUMAN IMMUNOGLOBULIN G [Suspect]
     Active Substance: HUMAN IMMUNOGLOBULIN G
     Indication: Primary immunodeficiency syndrome
     Dosage: UNK
     Route: 065
  2. GAMMAGARD LIQUID [Suspect]
     Active Substance: HUMAN IMMUNOGLOBULIN G
     Indication: Primary immunodeficiency syndrome
     Dosage: UNK
     Route: 042
     Dates: end: 2019

REACTIONS (14)
  - Renal injury [Unknown]
  - Loss of consciousness [Unknown]
  - Craniofacial fracture [Unknown]
  - Gastrointestinal disorder [Unknown]
  - Infusion site infection [Unknown]
  - Infusion site scar [Unknown]
  - Infection [Unknown]
  - Sinusitis [Unknown]
  - Blood immunoglobulin A increased [Unknown]
  - Upper limb fracture [Unknown]
  - Blood iron decreased [Unknown]
  - Dizziness [Unknown]
  - Lymphadenopathy [Unknown]
  - Inappropriate schedule of product administration [Unknown]
